FAERS Safety Report 9870206 (Version 1)
Quarter: 2014Q1

REPORT INFORMATION
  Report Type: Spontaneous
  Country: US (occurrence: None)
  Receive Date: 20140131
  Receipt Date: 20140131
  Transmission Date: 20141002
  Serious: Yes (Other)
  Sender: FDA-Public Use
  Company Number: 2014SA011628

PATIENT
  Age: 38 Year
  Sex: Male

DRUGS (3)
  1. UNISOM [Suspect]
     Indication: SLEEP DISORDER
     Route: 048
  2. CLONAZEPAM [Suspect]
  3. BENADRYL [Concomitant]

REACTIONS (2)
  - Insomnia [None]
  - Drug dependence [None]
